FAERS Safety Report 5811057-5 (Version None)
Quarter: 2008Q3

REPORT INFORMATION
  Report Type: 
  Country: None (occurrence: None)
  Receive Date: 20080710
  Receipt Date: 20080630
  Transmission Date: 20090109
  Serious: Yes (Death)
  Sender: FDA-Public Use
  Company Number: 20085217

PATIENT
  Sex: Female

DRUGS (2)
  1. LIORESAL [Suspect]
     Indication: MUSCLE SPASTICITY
     Dosage: 999 MCG, DAILY, INTRATHECAL
     Route: 037
  2. ANTIBIOTICS [Concomitant]

REACTIONS (2)
  - SKIN DISORDER [None]
  - SUDDEN DEATH [None]
